FAERS Safety Report 22061479 (Version 1)
Quarter: 2023Q1

REPORT INFORMATION
  Report Type: Spontaneous
  Country: FR (occurrence: FR)
  Receive Date: 20230304
  Receipt Date: 20230304
  Transmission Date: 20230418
  Serious: Yes (Other)
  Sender: FDA-Public Use
  Company Number: FR-AFSSAPS-MA20223656

PATIENT
  Age: 7 Year
  Sex: Female

DRUGS (2)
  1. HUMIRA [Suspect]
     Active Substance: ADALIMUMAB
     Indication: Juvenile idiopathic arthritis
     Dosage: TIME INTERVAL: 1 CYCLICAL
     Route: 058
     Dates: start: 20220518, end: 20220810
  2. METHOTREXATE [Suspect]
     Active Substance: METHOTREXATE
     Indication: Juvenile idiopathic arthritis
     Route: 030
     Dates: start: 20220406

REACTIONS (2)
  - Eczema [Recovering/Resolving]
  - Diffuse alopecia [Unknown]

NARRATIVE: CASE EVENT DATE: 20220501
